FAERS Safety Report 9216085 (Version 1)
Quarter: 2013Q2

REPORT INFORMATION
  Report Type: Spontaneous
  Country: US (occurrence: None)
  Receive Date: 20130403
  Receipt Date: 20130403
  Transmission Date: 20140414
  Serious: Yes (Life-Threatening, Hospitalization, Other)
  Sender: FDA-Public Use
  Company Number: DAV-AE-LOR-13-02

PATIENT
  Age: 30 Year
  Sex: Male

DRUGS (2)
  1. LORAZEPAM [Suspect]
     Indication: ALTERED STATE OF CONSCIOUSNESS
     Route: 030
  2. OLANZAPINE [Concomitant]

REACTIONS (4)
  - Hypoxia [None]
  - Oxygen saturation decreased [None]
  - Heart rate decreased [None]
  - Blood pressure systolic decreased [None]
